FAERS Safety Report 11698926 (Version 1)
Quarter: 2015Q4

REPORT INFORMATION
  Report Type: Spontaneous
  Country: US (occurrence: US)
  Receive Date: 20151104
  Receipt Date: 20151104
  Transmission Date: 20160304
  Serious: Yes (Hospitalization)
  Sender: FDA-Public Use
  Company Number: US-TEVA-604490USA

PATIENT
  Sex: Female

DRUGS (1)
  1. PROAIR HFA [Suspect]
     Active Substance: ALBUTEROL SULFATE
     Route: 055

REACTIONS (5)
  - Reaction to drug excipients [Unknown]
  - Malaise [Unknown]
  - Asthma [Unknown]
  - Mucous membrane disorder [Unknown]
  - Productive cough [Unknown]
